FAERS Safety Report 13886506 (Version 1)
Quarter: 2017Q3

REPORT INFORMATION
  Report Type: Spontaneous
  Country: US (occurrence: US)
  Receive Date: 20170821
  Receipt Date: 20170821
  Transmission Date: 20171127
  Serious: No
  Sender: FDA-Public Use
  Company Number: US-ALLERGAN-1666298US

PATIENT
  Age: 41 Year
  Sex: Male

DRUGS (2)
  1. ANDRODERM [Suspect]
     Active Substance: TESTOSTERONE
     Indication: ANDROGEN REPLACEMENT THERAPY
     Dosage: 4 MG, QHS
     Route: 062
     Dates: start: 201608
  2. LOSARTAN. [Concomitant]
     Active Substance: LOSARTAN
     Indication: HYPERTENSION
     Dosage: UNK
     Route: 048

REACTIONS (7)
  - Abdominal discomfort [Recovered/Resolved]
  - Inappropriate schedule of drug administration [Unknown]
  - Spontaneous penile erection [Not Recovered/Not Resolved]
  - Application site pain [Recovered/Resolved]
  - Product quality issue [Unknown]
  - Energy increased [Not Recovered/Not Resolved]
  - Application site irritation [Unknown]

NARRATIVE: CASE EVENT DATE: 201608
